FAERS Safety Report 25046161 (Version 1)
Quarter: 2025Q1

REPORT INFORMATION
  Report Type: Spontaneous
  Country: IR (occurrence: IR)
  Receive Date: 20250306
  Receipt Date: 20250306
  Transmission Date: 20250408
  Serious: Yes (Other)
  Sender: SEPTODONT
  Company Number: None

PATIENT
  Age: 7 Year
  Sex: Female

DRUGS (3)
  1. LIDOCAINE HYDROCHLORIDE [Suspect]
     Active Substance: LIDOCAINE HYDROCHLORIDE
     Indication: Dental local anaesthesia
     Route: 004
  2. TOPEX [Concomitant]
     Active Substance: BENZOCAINE
     Indication: Local anaesthesia
     Route: 050
  3. 27-gauge needle with a length of 25mm  (Septoject) [Concomitant]

REACTIONS (3)
  - Amaurosis [Recovered/Resolved]
  - Eye pain [Recovered/Resolved]
  - Ocular hyperaemia [Recovered/Resolved]
